FAERS Safety Report 16085200 (Version 1)
Quarter: 2019Q2

REPORT INFORMATION
  Report Type: Spontaneous
  Country: US (occurrence: US)
  Receive Date: 20190318
  Receipt Date: 20190318
  Transmission Date: 20190711
  Serious: Yes (Hospitalization, Other)
  Sender: FDA-Public Use
  Company Number: None

PATIENT
  Sex: Male

DRUGS (4)
  1. NITROSTAT [Concomitant]
     Active Substance: NITROGLYCERIN
  2. ALBUTEROL, ASPIRIN, ATORVASTATIN, CLOPIDORGREL, LOSARTAN [Concomitant]
  3. ESBRIET [Suspect]
     Active Substance: PIRFENIDONE
     Indication: IDIOPATHIC PULMONARY FIBROSIS
     Dosage: ?          OTHER FREQUENCY:3 TIMES A DAY;?
     Route: 048
     Dates: start: 20171121
  4. METFORMIN, DULERA, MONTELUKAST, BACTROBAN [Concomitant]

REACTIONS (1)
  - Lung transplant [None]
